FAERS Safety Report 5252497-5 (Version None)
Quarter: 2007Q1

REPORT INFORMATION
  Report Type: 
  Country: None (occurrence: None)
  Receive Date: 20070301
  Receipt Date: 20061226
  Transmission Date: 20070707
  Serious: No
  Sender: FDA-Public Use
  Company Number: US-BRISTOL-MYERS SQUIBB COMPANY-13625199

PATIENT
  Age: 70 Year
  Sex: Male

DRUGS (15)
  1. ERBITUX [Suspect]
     Indication: COLON CANCER
  2. IRINOTECAN HCL [Suspect]
     Indication: COLON CANCER
  3. FLUOROURACIL [Suspect]
     Indication: COLON CANCER
  4. LEUCOVORIN CALCIUM [Suspect]
     Indication: COLON CANCER
  5. AVASTIN [Suspect]
     Indication: COLON CANCER
  6. DECADRON [Concomitant]
     Indication: PREMEDICATION
     Route: 042
  7. ATROPINE [Concomitant]
     Indication: PREMEDICATION
     Route: 042
  8. BENADRYL [Concomitant]
     Indication: PREMEDICATION
     Route: 042
  9. ASPIRIN [Concomitant]
  10. PREVACID [Concomitant]
  11. MAXZIDE [Concomitant]
  12. LIPITOR [Concomitant]
  13. HUMULIN 70/30 [Concomitant]
  14. COMPAZINE [Concomitant]
  15. COUMADIN [Concomitant]

REACTIONS (1)
  - DERMATITIS ACNEIFORM [None]
